FAERS Safety Report 16232923 (Version 6)
Quarter: 2019Q3

REPORT INFORMATION
  Report Type: Spontaneous
  Country: US (occurrence: US)
  Receive Date: 20190424
  Receipt Date: 20190912
  Transmission Date: 20191004
  Serious: No
  Sender: FDA-Public Use
  Company Number: US-SA-2019SA107721

PATIENT
  Age: 49 Year
  Sex: Male
  Weight: 93.89 kg

DRUGS (1)
  1. ADMELOG [Suspect]
     Active Substance: INSULIN LISPRO
     Indication: TYPE 1 DIABETES MELLITUS
     Dosage: UNK
     Route: 065

REACTIONS (5)
  - Blood glucose increased [Unknown]
  - Renal disorder [Unknown]
  - Therapeutic response decreased [Unknown]
  - Glycosylated haemoglobin increased [Unknown]
  - Therapeutic product effect delayed [Unknown]
